FAERS Safety Report 5587659-0 (Version None)
Quarter: 2008Q1

REPORT INFORMATION
  Report Type: 
  Country: None (occurrence: None)
  Receive Date: 20080108
  Receipt Date: 20071206
  Transmission Date: 20080703
  Serious: Yes (Hospitalization)
  Sender: FDA-Public Use
  Company Number: US021972

PATIENT
  Age: 72 Year
  Sex: Female

DRUGS (6)
  1. ACTIQ [Suspect]
     Indication: BACK PAIN
     Dosage: 4800 UG USERS FOURTEEN 200UG LOZENGES; SOMETIMES USED MORE THAT 14 LOZENGES IN A DAY DAILY BUCCAL
     Route: 002
     Dates: start: 20030101, end: 20051031
  2. ZOLOFT [Concomitant]
  3. NEURONTIN [Concomitant]
  4. PREVACID [Concomitant]
  5. DETROL /01350201/ [Concomitant]
  6. CELEBREX [Concomitant]

REACTIONS (5)
  - DRUG DEPENDENCE [None]
  - DRUG WITHDRAWAL SYNDROME [None]
  - OVERDOSE [None]
  - RHINITIS [None]
  - TOOTH LOSS [None]
